FAERS Safety Report 7101142-2 (Version None)
Quarter: 2010Q4

REPORT INFORMATION
  Report Type: 
  Country: None (occurrence: None)
  Receive Date: 20101105
  Receipt Date: 20101018
  Transmission Date: 20110411
  Serious: No
  Sender: FDA-Public Use
  Company Number: 2010-00898

PATIENT
  Sex: Female

DRUGS (2)
  1. ZICAM NASAL PRODUCTS [Suspect]
  2. ZICAM ORAL PRODUCTS [Suspect]

REACTIONS (4)
  - AGEUSIA [None]
  - ANOSMIA [None]
  - BURNING SENSATION [None]
  - EYE IRRITATION [None]
